FAERS Safety Report 5898238-X (Version None)
Quarter: 2008Q3

REPORT INFORMATION
  Report Type: 
  Country: None (occurrence: None)
  Receive Date: 20080925
  Receipt Date: 20080617
  Transmission Date: 20090109
  Serious: No
  Sender: FDA-Public Use
  Company Number: A0623535A

PATIENT
  Age: 47 Year
  Sex: Female

DRUGS (4)
  1. WELLBUTRIN XL [Suspect]
     Indication: DEPRESSION
     Dosage: 150MG PER DAY
     Route: 048
     Dates: start: 20040401, end: 20080606
  2. XANAX [Concomitant]
  3. IRON [Concomitant]
  4. M.V.I. [Concomitant]

REACTIONS (7)
  - ABNORMAL DREAMS [None]
  - CRYING [None]
  - DIZZINESS [None]
  - HYPERSOMNIA [None]
  - NIGHTMARE [None]
  - PALPITATIONS [None]
  - VISUAL IMPAIRMENT [None]
